FAERS Safety Report 7179984-7 (Version None)
Quarter: 2010Q4

REPORT INFORMATION
  Report Type: 
  Country: None (occurrence: None)
  Receive Date: 20101123
  Receipt Date: 20100929
  Transmission Date: 20110411
  Serious: No
  Sender: FDA-Public Use
  Company Number: 016935

PATIENT
  Sex: Female

DRUGS (1)
  1. CIMZIA [Suspect]
     Indication: CROHN'S DISEASE
     Dates: start: 20100621

REACTIONS (3)
  - ABDOMINAL PAIN UPPER [None]
  - CROHN'S DISEASE [None]
  - FOOD INTOLERANCE [None]
